FAERS Safety Report 8759343 (Version 3)
Quarter: 2012Q4

REPORT INFORMATION
  Report Type: 
  Country: US (occurrence: US)
  Receive Date: 20120829
  Receipt Date: 20121207
  Transmission Date: 20130627
  Serious: No
  Sender: FDA-Public Use
  Company Number: US-009507513-1208USA010565

PATIENT
  Sex: Female
  Weight: 85.71 kg

DRUGS (11)
  1. LOTRIMIN ULTRA [Suspect]
     Indication: CANDIDIASIS
     Dosage: UNK, bid
     Route: 061
  2. LOTRIMIN ULTRA [Suspect]
     Indication: RASH
  3. LOTRIMIN ULTRA [Suspect]
     Indication: MEDICAL OBSERVATION
  4. LANTUS [Concomitant]
     Indication: DIABETES MELLITUS
     Dosage: UNK, Unknown
  5. LEVOTHYROXINE SODIUM [Concomitant]
     Indication: HYPOTHYROIDISM
     Dosage: UNK, Unknown
  6. BUMEX [Concomitant]
     Indication: OEDEMA PERIPHERAL
     Dosage: UNK, Unknown
  7. SPIRONOLACTONE [Concomitant]
     Indication: OEDEMA PERIPHERAL
     Dosage: UNK, Unknown
  8. CARBINOXAMINE MALEATE [Concomitant]
     Indication: RASH
     Dosage: UNK, Unknown
  9. HUMALOG [Concomitant]
     Indication: DIABETES MELLITUS
     Dosage: UNK, Unknown
  10. SIMVASTATIN [Concomitant]
     Indication: BLOOD CHOLESTEROL INCREASED
     Dosage: UNK, Unknown
  11. OMEPRAZOLE [Concomitant]
     Indication: ULCER
     Dosage: UNK, Unknown

REACTIONS (1)
  - Drug ineffective [Unknown]
